FAERS Safety Report 25623650 (Version 3)
Quarter: 2025Q4

REPORT INFORMATION
  Report Type: Report from Study
  Country: US (occurrence: US)
  Receive Date: 20250730
  Receipt Date: 20251017
  Transmission Date: 20260117
  Serious: Yes (Hospitalization, Other)
  Sender: ALEXION PHARMACEUTICALS
  Company Number: US-AstraZeneca-CH-00916920A

PATIENT
  Age: 79 Year
  Sex: Female

DRUGS (1)
  1. STRENSIQ [Suspect]
     Active Substance: ASFOTASE ALFA
     Indication: Hypophosphatasia
     Dosage: UNK

REACTIONS (8)
  - Breast cancer [Unknown]
  - Sepsis [Not Recovered/Not Resolved]
  - Cellulitis [Not Recovered/Not Resolved]
  - Pulmonary mass [Unknown]
  - Cataract [Unknown]
  - Postoperative wound infection [Unknown]
  - Fatigue [Unknown]
  - Nodule [Unknown]

NARRATIVE: CASE EVENT DATE: 20250501
